FAERS Safety Report 4601849-2 (Version None)
Quarter: 2005Q1

REPORT INFORMATION
  Report Type: 
  Country: None (occurrence: None)
  Receive Date: 20050131
  Receipt Date: 20041206
  Transmission Date: 20050727
  Serious: No
  Sender: FDA-Public Use
  Company Number: 200419351US

PATIENT
  Age: 52 Year
  Sex: Female

DRUGS (3)
  1. TELITHROMYCIN (KETEK) TABLETS [Suspect]
     Indication: SINUSITIS
     Dosage: 2 TABLETS (400MG) MG QD PO
     Route: 048
     Dates: start: 20040824, end: 20040824
  2. LIPITOR [Concomitant]
  3. MONTELUKAST SODIUM [Concomitant]

REACTIONS (1)
  - VISION BLURRED [None]
